FAERS Safety Report 21145447 (Version 2)
Quarter: 2024Q3

REPORT INFORMATION
  Report Type: Spontaneous
  Country: US (occurrence: US)
  Receive Date: 20220729
  Receipt Date: 20240808
  Transmission Date: 20241016
  Serious: Yes (Other)
  Sender: STRIDES
  Company Number: US-STRIDES ARCOLAB LIMITED-2022SP009409

PATIENT
  Age: 17 Year
  Sex: Male

DRUGS (22)
  1. PREDNISOLONE [Suspect]
     Active Substance: PREDNISOLONE
     Indication: Plasmablastic lymphoma
     Dosage: UNK
     Route: 065
  2. ETOPOSIDE [Suspect]
     Active Substance: ETOPOSIDE
     Indication: Plasmablastic lymphoma
     Dosage: UNK
     Route: 065
  3. ETOPOSIDE [Suspect]
     Active Substance: ETOPOSIDE
     Indication: Metastases to bone
     Dosage: UNK
     Route: 065
  4. ETOPOSIDE [Suspect]
     Active Substance: ETOPOSIDE
     Indication: Metastases to liver
  5. TACROLIMUS [Suspect]
     Active Substance: TACROLIMUS
     Indication: Acute graft versus host disease
     Dosage: UNK
     Route: 065
  6. IBRUTINIB [Suspect]
     Active Substance: IBRUTINIB
     Indication: Plasmablastic lymphoma
     Dosage: UNK
     Route: 065
  7. IBRUTINIB [Suspect]
     Active Substance: IBRUTINIB
     Indication: Metastases to bone
     Dosage: UNK
     Route: 065
  8. IBRUTINIB [Suspect]
     Active Substance: IBRUTINIB
     Indication: Metastases to liver
  9. DARATUMUMAB [Suspect]
     Active Substance: DARATUMUMAB
     Indication: Plasmablastic lymphoma
     Dosage: UNK
     Route: 065
  10. DARATUMUMAB [Suspect]
     Active Substance: DARATUMUMAB
     Indication: Metastases to bone
     Dosage: UNK
     Route: 065
  11. DARATUMUMAB [Suspect]
     Active Substance: DARATUMUMAB
     Indication: Metastases to liver
  12. CILTACABTAGENE AUTOLEUCEL [Suspect]
     Active Substance: CILTACABTAGENE AUTOLEUCEL
     Indication: Plasmablastic lymphoma
     Dosage: UNK (0.75 X 106 CAR+T CELLS/KG)
     Route: 065
  13. CILTACABTAGENE AUTOLEUCEL [Suspect]
     Active Substance: CILTACABTAGENE AUTOLEUCEL
     Indication: Metastases to bone
  14. CILTACABTAGENE AUTOLEUCEL [Suspect]
     Active Substance: CILTACABTAGENE AUTOLEUCEL
     Indication: Metastases to liver
  15. DOXORUBICIN [Concomitant]
     Active Substance: DOXORUBICIN
     Indication: Plasmablastic lymphoma
     Dosage: UNK
     Route: 065
  16. VINCRISTINE [Concomitant]
     Active Substance: VINCRISTINE
     Indication: Plasmablastic lymphoma
     Dosage: UNK
     Route: 065
  17. CYCLOPHOSPHAMIDE [Concomitant]
     Active Substance: CYCLOPHOSPHAMIDE
     Indication: Plasmablastic lymphoma
     Dosage: UNK
     Route: 065
  18. CYCLOPHOSPHAMIDE [Concomitant]
     Active Substance: CYCLOPHOSPHAMIDE
     Dosage: UNK
     Route: 065
  19. BORTEZOMIB [Concomitant]
     Active Substance: BORTEZOMIB
     Indication: Plasmablastic lymphoma
     Dosage: UNK
     Route: 065
  20. LENALIDOMIDE [Concomitant]
     Active Substance: LENALIDOMIDE
     Indication: Plasmablastic lymphoma
     Dosage: UNK
     Route: 065
  21. LENALIDOMIDE [Concomitant]
     Active Substance: LENALIDOMIDE
     Indication: Metastases to bone
  22. LENALIDOMIDE [Concomitant]
     Active Substance: LENALIDOMIDE
     Indication: Metastases to liver

REACTIONS (4)
  - Neutropenia [Recovered/Resolved]
  - Drug ineffective [Unknown]
  - Malignant neoplasm progression [Unknown]
  - Off label use [Unknown]
